FAERS Safety Report 12781340 (Version 3)
Quarter: 2016Q4

REPORT INFORMATION
  Report Type: Report from Study
  Country: US (occurrence: US)
  Receive Date: 20160926
  Receipt Date: 20161031
  Transmission Date: 20170207
  Serious: Yes (Other)
  Sender: FDA-Public Use
  Company Number: US-JNJFOC-20160921591

PATIENT
  Age: 81 Year
  Sex: Male

DRUGS (10)
  1. BRILINTA [Concomitant]
     Active Substance: TICAGRELOR
  2. TOPROL XL [Concomitant]
     Active Substance: METOPROLOL SUCCINATE
  3. CRESTOR [Concomitant]
     Active Substance: ROSUVASTATIN CALCIUM
  4. PRILOSEC [Concomitant]
     Active Substance: OMEPRAZOLE MAGNESIUM
  5. PREDNISONE. [Concomitant]
     Active Substance: PREDNISONE
  6. IMBRUVICA [Suspect]
     Active Substance: IBRUTINIB
     Indication: CHRONIC LYMPHOCYTIC LEUKAEMIA
     Route: 048
     Dates: start: 20140305
  7. ONDANSETRON [Concomitant]
     Active Substance: ONDANSETRON
  8. ACYCLOVIR. [Concomitant]
     Active Substance: ACYCLOVIR
  9. COENZYME Q10 [Concomitant]
     Active Substance: UBIDECARENONE
  10. METFORMIN [Concomitant]
     Active Substance: METFORMIN HYDROCHLORIDE

REACTIONS (3)
  - Fall [Unknown]
  - Upper limb fracture [Unknown]
  - Muscular weakness [Unknown]

NARRATIVE: CASE EVENT DATE: 201608
